FAERS Safety Report 10215596 (Version 1)
Quarter: 2014Q2

REPORT INFORMATION
  Report Type: Spontaneous
  Country: US (occurrence: US)
  Receive Date: 20140604
  Receipt Date: 20140604
  Transmission Date: 20141212
  Serious: Yes (Other)
  Sender: FDA-Public Use
  Company Number: US-BEH-2014042843

PATIENT
  Sex: Female
  Weight: 81 kg

DRUGS (17)
  1. ZEMAIRA [Suspect]
     Indication: ALPHA-1 ANTI-TRYPSIN DEFICIENCY
     Route: 042
  2. ZEMAIRA [Suspect]
     Indication: EMPHYSEMA
     Route: 042
  3. ALLERGY SHOT [Suspect]
  4. DIPHENHYDRAMINE [Concomitant]
  5. SODIUM CHLORIDE [Concomitant]
  6. EPI-PEN [Concomitant]
  7. PREDNISONE [Concomitant]
  8. ZANTAC [Concomitant]
  9. IPRATROPIUM BROMIDE [Concomitant]
  10. OMEPRAZOLE [Concomitant]
  11. CYMBALTA [Concomitant]
  12. POTASSIUM CHLORIDE [Concomitant]
  13. LISINOPRIL HCTZ [Concomitant]
  14. VENTOLIN [Concomitant]
  15. ASPIRIN [Concomitant]
  16. SYMBICORT [Concomitant]
  17. ALBUTEROL [Concomitant]

REACTIONS (3)
  - Anaphylactic reaction [Unknown]
  - Influenza like illness [Unknown]
  - Headache [Unknown]
